FAERS Safety Report 9329344 (Version 3)
Quarter: 2013Q3

REPORT INFORMATION
  Report Type: Spontaneous
  Country: ES (occurrence: ES)
  Receive Date: 20130604
  Receipt Date: 20130723
  Transmission Date: 20140515
  Serious: Yes (Hospitalization)
  Sender: FDA-Public Use
  Company Number: ES-GLAXOSMITHKLINE-B0896352A

PATIENT
  Age: 52 Year
  Sex: Male

DRUGS (5)
  1. TROBALT [Suspect]
     Indication: POST-TRAUMATIC EPILEPSY
     Dosage: 300MG PER DAY
     Route: 048
     Dates: start: 20121214, end: 20130417
  2. GARDENAL [Concomitant]
     Indication: PETIT MAL EPILEPSY
     Route: 048
     Dates: end: 201304
  3. NEURONTIN [Concomitant]
     Indication: PETIT MAL EPILEPSY
     Dosage: 200MG TWICE PER DAY
     Route: 048
     Dates: end: 201304
  4. TRANXILIUM [Concomitant]
     Indication: PRODUCT USED FOR UNKNOWN INDICATION
     Route: 048
  5. LAMICTAL [Concomitant]
     Indication: PETIT MAL EPILEPSY
     Dosage: 500MG PER DAY
     Route: 048
     Dates: start: 20070417

REACTIONS (7)
  - Hepatitis toxic [Recovering/Resolving]
  - Jaundice [Unknown]
  - Asthenia [Unknown]
  - Decreased appetite [Unknown]
  - Asthenia [Unknown]
  - Malaise [Unknown]
  - Hepatic enzyme increased [Unknown]
